FAERS Safety Report 11604120 (Version 1)
Quarter: 2015Q4

REPORT INFORMATION
  Report Type: Report from Study
  Country: US (occurrence: US)
  Receive Date: 20151007
  Receipt Date: 20151007
  Transmission Date: 20160304
  Serious: Yes (Other)
  Sender: FDA-Public Use
  Company Number: US-AMGEN-USASP2011005732

PATIENT
  Sex: Female

DRUGS (1)
  1. ENBREL [Suspect]
     Active Substance: ETANERCEPT
     Indication: RHEUMATOID ARTHRITIS
     Dosage: 25 MG, 2 TIMES/WK
     Route: 065
     Dates: start: 200212

REACTIONS (7)
  - Arthropathy [Unknown]
  - Knee arthroplasty [Unknown]
  - Hand deformity [Unknown]
  - Therapy change [Unknown]
  - Synovial cyst [Unknown]
  - Musculoskeletal disorder [Unknown]
  - Joint range of motion decreased [Unknown]
